FAERS Safety Report 14909622 (Version 7)
Quarter: 2019Q3

REPORT INFORMATION
  Report Type: Spontaneous
  Country: US (occurrence: US)
  Receive Date: 20180517
  Receipt Date: 20190913
  Transmission Date: 20191004
  Serious: Yes (Hospitalization, Other)
  Sender: FDA-Public Use
  Company Number: US-GLAXOSMITHKLINE-US2018GSK085869

PATIENT
  Sex: Male
  Weight: 92 kg

DRUGS (4)
  1. LANSOPRAZOLE. [Suspect]
     Active Substance: LANSOPRAZOLE
     Indication: GASTROOESOPHAGEAL REFLUX DISEASE
     Dosage: 30 MG, UNK
     Route: 065
  2. PREVACID [Suspect]
     Active Substance: LANSOPRAZOLE
     Indication: GASTROOESOPHAGEAL REFLUX DISEASE
     Dosage: 30 MG, UNK
     Route: 065
  3. PREVACID [Suspect]
     Active Substance: LANSOPRAZOLE
     Indication: GASTROOESOPHAGEAL REFLUX DISEASE
     Dosage: 30 MG, UNK
     Route: 065
  4. PANTOPRAZOLE [Suspect]
     Active Substance: PANTOPRAZOLE
     Indication: GASTROOESOPHAGEAL REFLUX DISEASE
     Dosage: 40 MG, UNK
     Route: 065

REACTIONS (19)
  - Renal failure [Not Recovered/Not Resolved]
  - Acute kidney injury [Not Recovered/Not Resolved]
  - Hydronephrosis [Unknown]
  - Dialysis [Not Recovered/Not Resolved]
  - Chronic kidney disease [Not Recovered/Not Resolved]
  - Biopsy kidney [Unknown]
  - Renal cyst [Unknown]
  - Glycosuria [Unknown]
  - Nephrosclerosis [Unknown]
  - Proteinuria [Unknown]
  - Blood creatinine increased [Unknown]
  - Haematuria [Unknown]
  - End stage renal disease [Not Recovered/Not Resolved]
  - Urinary tract obstruction [Unknown]
  - Renal transplant [Not Recovered/Not Resolved]
  - Focal segmental glomerulosclerosis [Unknown]
  - Nocturia [Unknown]
  - Blood urea increased [Unknown]
  - Tubulointerstitial nephritis [Unknown]
